FAERS Safety Report 9413255 (Version 1)
Quarter: 2013Q3

REPORT INFORMATION
  Report Type: Spontaneous
  Country: None (occurrence: None)
  Receive Date: 20130709
  Receipt Date: 20130709
  Transmission Date: 20140515
  Serious: Yes (Other)
  Sender: FDA-Public Use
  Company Number: 08-AUR-05252

PATIENT
  Age: 29 Year
  Sex: Male

DRUGS (1)
  1. FLUOXETINE (FLUOXETINE) (FLUOXETINE) [Suspect]
     Indication: DEPRESSION
     Dosage: 20 MG 1 D

REACTIONS (5)
  - Dystonia [None]
  - Muscle spasms [None]
  - Musculoskeletal stiffness [None]
  - Tremor [None]
  - Muscle contractions involuntary [None]
